FAERS Safety Report 10042868 (Version 2)
Quarter: 2014Q1

REPORT INFORMATION
  Report Type: Spontaneous
  Country: US (occurrence: US)
  Receive Date: 20140327
  Receipt Date: 20140327
  Transmission Date: 20141002
  Serious: Yes (Other)
  Sender: FDA-Public Use
  Company Number: US-GE HEALTHCARE MEDICAL DIAGNOSTICS-OSCN-PR-0906S-0319

PATIENT
  Age: 39 Year
  Sex: Male

DRUGS (5)
  1. GADOLINIUM (UNSPECIFIED) [Suspect]
     Indication: RENAL TRANSPLANT
     Route: 042
     Dates: start: 20041108, end: 20041108
  2. GADOLINIUM (UNSPECIFIED) [Suspect]
     Indication: TEMPOROMANDIBULAR JOINT SYNDROME
     Route: 042
     Dates: start: 20041218, end: 20041218
  3. PROHANCE [Suspect]
     Indication: PRODUCT USED FOR UNKNOWN INDICATION
     Dates: start: 20040630, end: 20040630
  4. MAGNEVIST [Suspect]
     Indication: JOINT SWELLING
     Route: 042
     Dates: start: 20010421, end: 20010421
  5. EPOGEN [Concomitant]

REACTIONS (1)
  - Nephrogenic systemic fibrosis [Not Recovered/Not Resolved]
